FAERS Safety Report 8169581-9 (Version None)
Quarter: 2012Q1

REPORT INFORMATION
  Report Type: 
  Country: None (occurrence: None)
  Receive Date: 20120104
  Receipt Date: 20111128
  Transmission Date: 20120608
  Serious: No
  Sender: FDA-Public Use
  Company Number: 2011HGS-002868

PATIENT
  Age: 58 Year
  Sex: Female
  Weight: 78.4723 kg

DRUGS (11)
  1. CARAFATE [Concomitant]
  2. TAGAMET [Concomitant]
  3. METFORMIN HCL [Concomitant]
  4. LIPITOR [Concomitant]
  5. MAGNESIUM (MAGNESIUM) [Concomitant]
  6. PLAQUENIL [Concomitant]
  7. PROVIGIL [Concomitant]
  8. AMBIEN [Concomitant]
  9. BENLYSTA [Suspect]
     Indication: SYSTEMIC LUPUS ERYTHEMATOSUS
     Dosage: 10 MG/KG, 1 IN 28 D, INTRAVENOUS DRIP
     Route: 041
     Dates: start: 20111012
  10. CELEBREX [Concomitant]
  11. GABAPENTIN [Concomitant]

REACTIONS (11)
  - INFUSION RELATED REACTION [None]
  - FATIGUE [None]
  - PAIN IN EXTREMITY [None]
  - PAIN [None]
  - FACE OEDEMA [None]
  - FEELING HOT [None]
  - VISION BLURRED [None]
  - CONSTIPATION [None]
  - FEELING ABNORMAL [None]
  - ERYTHEMA [None]
  - OROPHARYNGEAL PAIN [None]
